FAERS Safety Report 9797066 (Version 3)
Quarter: 2014Q1

REPORT INFORMATION
  Report Type: Spontaneous
  Country: BR (occurrence: BR)
  Receive Date: 20140105
  Receipt Date: 20140121
  Transmission Date: 20141002
  Serious: Yes (Other)
  Sender: FDA-Public Use
  Company Number: BR-PFIZER INC-2013352157

PATIENT
  Age: 35 Year
  Sex: Female
  Weight: 67 kg

DRUGS (1)
  1. CELEBRA [Suspect]
     Indication: ANTIINFLAMMATORY THERAPY
     Dosage: 1 TABLET (200 MG), DAILY
     Route: 048
     Dates: start: 20131031, end: 2013

REACTIONS (4)
  - Necrosis [Unknown]
  - Foot fracture [Unknown]
  - Infection [Unknown]
  - Pain [Unknown]
